FAERS Safety Report 12429039 (Version 7)
Quarter: 2017Q1

REPORT INFORMATION
  Report Type: Report from Study
  Country: US (occurrence: US)
  Receive Date: 20160602
  Receipt Date: 20170119
  Transmission Date: 20170428
  Serious: Yes (Other)
  Sender: FDA-Public Use
  Company Number: US-JNJFOC-20160427274

PATIENT
  Age: 69 Year
  Sex: Male

DRUGS (15)
  1. PRILOSEC [Concomitant]
     Active Substance: OMEPRAZOLE MAGNESIUM
  2. LISINOPRIL. [Concomitant]
     Active Substance: LISINOPRIL
     Route: 048
  3. METFORMIN [Concomitant]
     Active Substance: METFORMIN HYDROCHLORIDE
     Route: 048
     Dates: start: 20160421
  4. NITROSTAT [Concomitant]
     Active Substance: NITROGLYCERIN
     Dates: start: 20151202
  5. ZANAFLEX [Concomitant]
     Active Substance: TIZANIDINE HYDROCHLORIDE
     Indication: PAIN
     Route: 048
     Dates: start: 20160504
  6. IMBRUVICA [Suspect]
     Active Substance: IBRUTINIB
     Indication: CHRONIC LYMPHOCYTIC LEUKAEMIA
     Route: 048
     Dates: end: 201609
  7. ATORVASTATIN [Concomitant]
     Active Substance: ATORVASTATIN
     Route: 048
     Dates: start: 20151202
  8. METOPROLOL TARTRATE. [Concomitant]
     Active Substance: METOPROLOL TARTRATE
     Route: 048
     Dates: start: 20151202
  9. MOUTH WASH [Concomitant]
     Indication: OROPHARYNGEAL PAIN
     Dosage: UNK, PRN (SWALLOW Q 3 HOURS)
     Dates: start: 20160311
  10. TERAZOSIN [Concomitant]
     Active Substance: TERAZOSIN\TERAZOSIN HYDROCHLORIDE
     Route: 048
     Dates: start: 20151202
  11. ASPIRIN. [Concomitant]
     Active Substance: ASPIRIN
     Route: 048
     Dates: start: 20150212
  12. PREDNISONE. [Concomitant]
     Active Substance: PREDNISONE
     Dates: start: 20160311
  13. ZOFRAN [Concomitant]
     Active Substance: ONDANSETRON HYDROCHLORIDE
     Indication: NAUSEA
     Route: 048
     Dates: start: 20160324
  14. IMBRUVICA [Suspect]
     Active Substance: IBRUTINIB
     Indication: CHRONIC LYMPHOCYTIC LEUKAEMIA
     Route: 048
     Dates: start: 20160421, end: 201606
  15. IMBRUVICA [Suspect]
     Active Substance: IBRUTINIB
     Indication: CHRONIC LYMPHOCYTIC LEUKAEMIA
     Route: 048
     Dates: start: 201606

REACTIONS (18)
  - Chest pain [Unknown]
  - Tongue ulceration [Not Recovered/Not Resolved]
  - Pollakiuria [Unknown]
  - Blood urine present [Not Recovered/Not Resolved]
  - Drug ineffective [Recovered/Resolved]
  - Nodule [Not Recovered/Not Resolved]
  - Muscle spasms [Recovering/Resolving]
  - Stomatitis [Not Recovered/Not Resolved]
  - Off label use [Recovered/Resolved]
  - Incorrect dose administered [Recovered/Resolved]
  - Dizziness [Recovering/Resolving]
  - Rash erythematous [Recovering/Resolving]
  - Abdominal distension [Unknown]
  - Abdominal pain upper [Not Recovered/Not Resolved]
  - Myalgia [Recovering/Resolving]
  - Flatulence [Unknown]
  - Aneurysm [Not Recovered/Not Resolved]
  - Nocturia [Unknown]

NARRATIVE: CASE EVENT DATE: 2016
